FAERS Safety Report 5151227-5 (Version None)
Quarter: 2006Q4

REPORT INFORMATION
  Report Type: 
  Country: None (occurrence: None)
  Receive Date: 20061113
  Receipt Date: 20061113
  Transmission Date: 20070319
  Serious: Yes (Other)
  Sender: FDA-Public Use
  Company Number: None

PATIENT
  Age: 36 Year
  Sex: Female
  Weight: 57.1532 kg

DRUGS (2)
  1. LEVAQUIN [Suspect]
     Indication: PNEUMONIA
     Dosage: 750MG 1CE/DAY PO 500MG 1CE/DAY PO
     Route: 048
     Dates: start: 20061101, end: 20061108
  2. CELEXA [Concomitant]

REACTIONS (3)
  - DYSSTASIA [None]
  - FATIGUE [None]
  - FEELING ABNORMAL [None]
